FAERS Safety Report 13354227 (Version 1)
Quarter: 2017Q1

REPORT INFORMATION
  Report Type: Spontaneous
  Country: GB (occurrence: US)
  Receive Date: 20170321
  Receipt Date: 20170321
  Transmission Date: 20170429
  Serious: Yes (Hospitalization)
  Sender: FDA-Public Use
  Company Number: GB-CIPLA LTD.-2016US22711

PATIENT

DRUGS (15)
  1. BEVACIZUMAB [Suspect]
     Active Substance: BEVACIZUMAB
     Indication: COLORECTAL CANCER METASTATIC
     Dosage: 5 MG/KG, TWICE WEEKLY
     Route: 042
     Dates: start: 20140929, end: 20140929
  2. IRINOTECAN [Suspect]
     Active Substance: IRINOTECAN
     Indication: COLORECTAL CANCER METASTATIC
     Dosage: 165 MG/M2, TWICE WEEKLY
     Route: 042
     Dates: start: 20140929, end: 20140929
  3. FLUOROURACIL. [Suspect]
     Active Substance: FLUOROURACIL
     Dosage: 2400 MG/M2, TWICE WEEKLY
     Route: 042
     Dates: start: 20150114, end: 20150114
  4. ELOXATIN [Suspect]
     Active Substance: OXALIPLATIN
     Dosage: 65 MG/M2, TWICE WEEKLY
     Route: 042
     Dates: start: 20150114, end: 20150114
  5. FLUOROURACIL. [Suspect]
     Active Substance: FLUOROURACIL
     Indication: COLORECTAL CANCER METASTATIC
     Dosage: 3200 MG/M2, TWICE WEEKLY
     Route: 042
     Dates: start: 20140929, end: 20140929
  6. LEUCOVORIN. [Suspect]
     Active Substance: LEUCOVORIN
     Dosage: 200 MG/M2, TWICE WEEKLY
     Route: 042
     Dates: start: 20141217, end: 20141217
  7. BEVACIZUMAB [Suspect]
     Active Substance: BEVACIZUMAB
     Dosage: 5 MG/KG, TWICE WEEKLY
     Route: 042
     Dates: start: 20141217, end: 20141217
  8. ELOXATIN [Suspect]
     Active Substance: OXALIPLATIN
     Dosage: 85 MG/M2, TWICE WEEKLY
     Route: 042
     Dates: start: 20141217, end: 20141217
  9. ATIVAN [Concomitant]
     Active Substance: LORAZEPAM
     Dosage: 0.5 MG, UNK
     Route: 065
     Dates: start: 20140829
  10. IRINOTECAN [Suspect]
     Active Substance: IRINOTECAN
     Dosage: 200 MG/M2, TWICE WEEKLY
     Route: 042
     Dates: start: 20141217, end: 20141217
  11. ELOXATIN [Suspect]
     Active Substance: OXALIPLATIN
     Indication: COLORECTAL CANCER METASTATIC
     Dosage: 65 MG/M2, TWICE WEEKLY
     Route: 042
     Dates: start: 20140929, end: 20140929
  12. LEUCOVORIN. [Suspect]
     Active Substance: LEUCOVORIN
     Indication: COLORECTAL CANCER METASTATIC
     Dosage: 200 MG/M2, TWICE WEEKLY
     Route: 042
     Dates: start: 20140929, end: 20140929
  13. SANCUSO [Concomitant]
     Active Substance: GRANISETRON
     Dosage: 0.5 MG, UNK
     Route: 062
     Dates: start: 20141013, end: 20150211
  14. IRINOTECAN [Suspect]
     Active Substance: IRINOTECAN
     Dosage: 120 MG/M2, TWICE WEEKLY
     Route: 042
     Dates: start: 20150114, end: 20150114
  15. FLUOROURACIL. [Suspect]
     Active Substance: FLUOROURACIL
     Dosage: 2400 MG/M2, TWICE WEEKLY
     Route: 042
     Dates: start: 20141217, end: 20141217

REACTIONS (2)
  - Nausea [Recovered/Resolved]
  - Vomiting [Recovered/Resolved]

NARRATIVE: CASE EVENT DATE: 20141016
